FAERS Safety Report 17110950 (Version 5)
Quarter: 2020Q1

REPORT INFORMATION
  Report Type: Spontaneous
  Country: JP (occurrence: JP)
  Receive Date: 20191204
  Receipt Date: 20200229
  Transmission Date: 20200409
  Serious: Yes (Life-Threatening, Hospitalization)
  Sender: FDA-Public Use
  Company Number: JP-ABBVIE-19K-087-3177484-00

PATIENT
  Age: 30 Year
  Sex: Male
  Weight: 57.8 kg

DRUGS (3)
  1. AZATHIOPRINE. [Concomitant]
     Active Substance: AZATHIOPRINE
     Indication: PRODUCT USED FOR UNKNOWN INDICATION
     Route: 065
     Dates: start: 20100608, end: 20100710
  2. HUMIRA [Suspect]
     Active Substance: ADALIMUMAB
     Indication: COLITIS ULCERATIVE
     Route: 058
     Dates: start: 20160222, end: 20191124
  3. ASACOL [Suspect]
     Active Substance: MESALAMINE
     Indication: COLITIS ULCERATIVE
     Route: 048
     Dates: start: 20130430, end: 20191124

REACTIONS (7)
  - Vomiting [Unknown]
  - Dyspnoea [Unknown]
  - Myocarditis [Recovered/Resolved with Sequelae]
  - Pneumonia [Unknown]
  - Cardiac failure [Recovering/Resolving]
  - Abdominal pain [Unknown]
  - Biliary tract infection [Unknown]

NARRATIVE: CASE EVENT DATE: 20191122
